FAERS Safety Report 7899921-7 (Version None)
Quarter: 2011Q4

REPORT INFORMATION
  Report Type: 
  Country: None (occurrence: None)
  Receive Date: 20111107
  Receipt Date: 20111012
  Transmission Date: 20120403
  Serious: No
  Sender: FDA-Public Use
  Company Number: US-AMGEN-KDL440529

PATIENT
  Age: 54 Year
  Sex: Male

DRUGS (4)
  1. ENBREL [Suspect]
     Indication: PSORIASIS
     Dosage: 50 MG, QWK
     Route: 058
     Dates: start: 20021127, end: 20100101
  2. LIPITOR [Concomitant]
     Indication: HYPERCHOLESTEROLAEMIA
  3. ENBREL [Suspect]
     Indication: RHEUMATOID ARTHRITIS
  4. LOPID [Concomitant]
     Indication: HYPERCHOLESTEROLAEMIA

REACTIONS (5)
  - PERIPHERAL NERVE INJURY [None]
  - HYPOAESTHESIA [None]
  - INTERVERTEBRAL DISC DEGENERATION [None]
  - DIZZINESS [None]
  - PAIN IN EXTREMITY [None]
